FAERS Safety Report 18448393 (Version 1)
Quarter: 2020Q4

REPORT INFORMATION
  Report Type: Spontaneous
  Country: US (occurrence: US)
  Receive Date: 20201030
  Receipt Date: 20201030
  Transmission Date: 20210114
  Serious: No
  Sender: FDA-Public Use
  Company Number: US-TEVA-2020-US-1843261

PATIENT

DRUGS (2)
  1. SILDENAFIL. [Suspect]
     Active Substance: SILDENAFIL
     Route: 065
  2. SILDENAFIL. [Suspect]
     Active Substance: SILDENAFIL

REACTIONS (1)
  - Drug ineffective [Unknown]
